FAERS Safety Report 15687738 (Version 1)
Quarter: 2018Q4

REPORT INFORMATION
  Report Type: Spontaneous
  Country: US (occurrence: US)
  Receive Date: 20181205
  Receipt Date: 20181205
  Transmission Date: 20190205
  Serious: Yes (Hospitalization, Other)
  Sender: FDA-Public Use
  Company Number: US-ROCHE-2211332

PATIENT
  Age: 5 Day
  Sex: Male

DRUGS (3)
  1. MILRINONE [Concomitant]
     Active Substance: MILRINONE
  2. HEPARIN [Concomitant]
     Active Substance: HEPARIN SODIUM
     Route: 065
  3. ACTIVASE [Suspect]
     Active Substance: ALTEPLASE
     Indication: PRODUCT USED FOR UNKNOWN INDICATION
     Dosage: DOSE: 0.3 MG/KG/HOUR
     Route: 065

REACTIONS (2)
  - Haemorrhage intracranial [Unknown]
  - Pharyngeal haemorrhage [Unknown]
